FAERS Safety Report 6203394-X (Version None)
Quarter: 2009Q2

REPORT INFORMATION
  Report Type: 
  Country: None (occurrence: None)
  Receive Date: 20090527
  Receipt Date: 20090515
  Transmission Date: 20091009
  Serious: Yes (Hospitalization)
  Sender: FDA-Public Use
  Company Number: JP-AMGEN-US337879

PATIENT
  Sex: Female

DRUGS (3)
  1. ENBREL [Suspect]
     Indication: RHEUMATOID ARTHRITIS
     Dosage: UNSPECIFIED
     Route: 058
     Dates: start: 20080801
  2. RHEUMATREX [Suspect]
     Route: 048
     Dates: end: 20090217
  3. RHEUMATREX [Suspect]
     Route: 048
     Dates: start: 20090309

REACTIONS (7)
  - ADVERSE REACTION [None]
  - ARTHRALGIA [None]
  - GASTRITIS [None]
  - INTERSTITIAL LUNG DISEASE [None]
  - NASOPHARYNGITIS [None]
  - ORAL CANDIDIASIS [None]
  - REFLUX OESOPHAGITIS [None]
